FAERS Safety Report 10261735 (Version 2)
Quarter: 2014Q3

REPORT INFORMATION
  Report Type: Spontaneous
  Country: CH (occurrence: CH)
  Receive Date: 20140626
  Receipt Date: 20140707
  Transmission Date: 20150326
  Serious: Yes (Hospitalization)
  Sender: FDA-Public Use
  Company Number: CH-PFIZER INC-2014173313

PATIENT
  Age: 92 Year
  Sex: Male
  Weight: 78 kg

DRUGS (7)
  1. SCHERIPROCT (CINCHOCAINE HYDROCHLORIDE\HEXACHLOROPHENE\PREDNISOLONE) [Suspect]
     Active Substance: DIBUCAINE HYDROCHLORIDE\HEXACHLOROPHENE\PREDNISOLONE
     Indication: HAEMORRHOIDS
     Dosage: 1 DF, 1X/DAY
     Route: 054
     Dates: start: 20140415, end: 20140422
  2. FERINJECT [Suspect]
     Active Substance: FERRIC CARBOXYMALTOSE
     Indication: IRON DEFICIENCY ANAEMIA
     Dosage: 500 MG, 1X/DAY
     Route: 042
     Dates: start: 20140414, end: 20140415
  3. METOPROLOL SUCCINATE. [Suspect]
     Active Substance: METOPROLOL SUCCINATE
     Dosage: 25 MG, 1X/DAY
     Route: 048
     Dates: end: 20140417
  4. PANTOZOL [Suspect]
     Active Substance: PANTOPRAZOLE SODIUM
     Dosage: 20 MG, DAILY
     Route: 048
  5. PANTOZOL [Suspect]
     Active Substance: PANTOPRAZOLE SODIUM
     Dosage: 40 MG, 1X/DAY
     Route: 048
     Dates: start: 20140417
  6. PERENTEROL 250 [Suspect]
     Active Substance: SACCHAROMYCES CEREVISIAE
     Dosage: 250 MG, 1X/DAY
     Route: 048
     Dates: start: 20140414, end: 20140417
  7. PANTOZOL [Suspect]
     Active Substance: PANTOPRAZOLE SODIUM
     Dosage: 40 MG, DAILY
     Route: 040
     Dates: start: 20140413, end: 20140416

REACTIONS (3)
  - Hyperlipasaemia [Recovering/Resolving]
  - Hyperbilirubinaemia [Recovering/Resolving]
  - Transaminases increased [Recovering/Resolving]

NARRATIVE: CASE EVENT DATE: 20140416
